FAERS Safety Report 6172925-0 (Version None)
Quarter: 2009Q2

REPORT INFORMATION
  Report Type: 
  Country: None (occurrence: None)
  Receive Date: 20090428
  Receipt Date: 20090415
  Transmission Date: 20091009
  Serious: Yes (Death)
  Sender: FDA-Public Use
  Company Number: 2009AP001543

PATIENT
  Age: 79 Year
  Sex: Male

DRUGS (9)
  1. ALENDRONATE SODIUM [Suspect]
     Dosage: 70 MG;QW PO
     Route: 048
     Dates: start: 20081114
  2. OMEPRAZOLE [Suspect]
     Dosage: PO
     Route: 048
     Dates: start: 20081114
  3. ACETYLCYSTEINE [Suspect]
     Indication: IDIOPATHIC PULMONARY FIBROSIS
     Dosage: 600 MG;PO;TID
     Route: 048
     Dates: start: 20081114, end: 20081226
  4. AZATHIOPRINE [Suspect]
     Indication: IDIOPATHIC PULMONARY FIBROSIS
     Dosage: 125 MG;PO;QD
     Route: 048
     Dates: start: 20081114, end: 20081226
  5. PREDNISOLONE [Suspect]
  6. WARFARIN SODIUM [Concomitant]
  7. AMIODARONE HCL [Concomitant]
  8. ATORVASTATIN (ATORVASTATION) [Concomitant]
  9. CANDESARTAN CILEXETIL [Concomitant]

REACTIONS (4)
  - ERYTHEMA [None]
  - NEUTROPENIA [None]
  - SEPSIS [None]
  - TOXIC EPIDERMAL NECROLYSIS [None]
